FAERS Safety Report 12382608 (Version 1)
Quarter: 2016Q2

REPORT INFORMATION
  Report Type: Spontaneous
  Country: US (occurrence: US)
  Receive Date: 20160518
  Receipt Date: 20160518
  Transmission Date: 20160815
  Serious: No
  Sender: FDA-Public Use
  Company Number: US-MALLINCKRODT-T201601185

PATIENT
  Age: 69 Year
  Sex: Female
  Weight: 71 kg

DRUGS (1)
  1. H.P. ACTHAR [Suspect]
     Active Substance: CORTICOTROPIN
     Indication: PROTEINURIA
     Dosage: 80 UNITS TWICE A WEEK
     Route: 058
     Dates: start: 20160209

REACTIONS (2)
  - Laryngitis [Recovering/Resolving]
  - Cough [Recovered/Resolved]

NARRATIVE: CASE EVENT DATE: 20160323
